FAERS Safety Report 8370041-0 (Version None)
Quarter: 2012Q2

REPORT INFORMATION
  Report Type: 
  Country: None (occurrence: None)
  Receive Date: 20120518
  Receipt Date: 20120514
  Transmission Date: 20120825
  Serious: Yes (Life-Threatening)
  Sender: FDA-Public Use
  Company Number: US-UCBSA-034451

PATIENT
  Age: 70 Year
  Sex: Male
  Weight: 47.72 kg

DRUGS (29)
  1. CALCIUM WITH VITAMIN D [Concomitant]
     Indication: OSTEOPOROSIS
     Dosage: 800MG (CALCIUM); 200 U(VITAMIN D)
  2. MULTI-VITAMINS [Concomitant]
     Indication: CROHN'S DISEASE
  3. BOOST [Concomitant]
     Indication: CROHN'S DISEASE
  4. FIORINAL [Concomitant]
     Indication: PAIN
     Dosage: 1 CAPSULE EVERY4-6 HOURS
     Route: 048
  5. MULTI-VITAMINS [Concomitant]
     Indication: VITAMIN SUPPLEMENTATION
  6. M.V.I. [Concomitant]
     Indication: VITAMIN SUPPLEMENTATION
  7. CIMZIA [Suspect]
     Indication: CROHN'S DISEASE
     Dosage: NEXT DOSE RECEIVED ON 05-APR-2011; 400
     Route: 058
     Dates: start: 20110222
  8. MESALAMINE [Concomitant]
     Route: 048
     Dates: start: 20040628
  9. CALCIUM WITH VITAMIN D [Concomitant]
     Indication: CROHN'S DISEASE
     Dosage: 800MG (CALCIUM); 200 U(VITAMIN D)
  10. LOVAZA [Concomitant]
     Indication: CROHN'S DISEASE
  11. PREDNISONE [Concomitant]
     Dates: start: 20100214
  12. VITAMIN B-12 [Concomitant]
     Indication: ANAEMIA VITAMIN B12 DEFICIENCY
     Route: 030
  13. CLARITIN [Concomitant]
     Indication: HYPERSENSITIVITY
     Route: 048
  14. DOXAZOSIN MESYLATE [Concomitant]
     Indication: BENIGN PROSTATIC HYPERPLASIA
     Route: 048
  15. ASPIRIN [Concomitant]
     Indication: CORONARY ARTERY DISEASE
     Route: 048
  16. MESALAMINE [Concomitant]
     Indication: CROHN'S DISEASE
     Dates: start: 19991203, end: 20040628
  17. PREDNISONE [Concomitant]
     Indication: CROHN'S DISEASE
     Dates: start: 19991203, end: 20090609
  18. ADVAIR DISKUS 100/50 [Concomitant]
     Indication: CHRONIC OBSTRUCTIVE PULMONARY DISEASE
     Dosage: INH 250/50 MG, 1 PUFF
  19. FLUTICASONE FUROATE [Concomitant]
     Indication: HYPERSENSITIVITY
     Dosage: 1 SPRAY EA NOSTRIL, BID
     Route: 045
  20. NEXIUM [Concomitant]
     Indication: PEPTIC ULCER
     Route: 048
  21. BUDESONIDE [Concomitant]
     Indication: CROHN'S DISEASE
     Dates: start: 20090121
  22. ASPIRIN [Concomitant]
     Indication: CROHN'S DISEASE
  23. POTASSIUM CITRATE [Concomitant]
     Indication: CROHN'S DISEASE
  24. LOVAZA [Concomitant]
     Indication: MEDICAL DIET
  25. DOXEPIN [Concomitant]
     Indication: DEPRESSION
     Route: 048
  26. SPIRIVA [Concomitant]
     Indication: CHRONIC OBSTRUCTIVE PULMONARY DISEASE
     Dosage: INH 1 PUFF
  27. TRIAMTERENE AND HYDROCHLOROTHIAZIDE [Concomitant]
     Indication: OEDEMA
  28. TOPROL-XL [Concomitant]
     Indication: TACHYCARDIA
     Route: 048
  29. RECLAST [Concomitant]
     Indication: OSTEOPOROSIS
     Route: 042

REACTIONS (1)
  - BLADDER CANCER RECURRENT [None]
